FAERS Safety Report 5174260-6 (Version None)
Quarter: 2006Q4

REPORT INFORMATION
  Report Type: 
  Country: None (occurrence: None)
  Receive Date: 20061214
  Receipt Date: 20061207
  Transmission Date: 20070319
  Serious: Yes (Hospitalization, Congenital Anomaly, Other)
  Sender: FDA-Public Use
  Company Number: US-JNJFOC-20061101551

PATIENT
  Sex: Female

DRUGS (5)
  1. TOPAMAX [Suspect]
  2. TOPAMAX [Suspect]
     Indication: DRUG EXPOSURE DURING PREGNANCY
  3. IMITREX [Suspect]
     Indication: DRUG EXPOSURE DURING PREGNANCY
  4. MIRCETTE [Concomitant]
     Indication: DRUG EXPOSURE DURING PREGNANCY
  5. EPIDURAL ANESTHESIA [Concomitant]
     Indication: DRUG EXPOSURE DURING PREGNANCY
     Route: 064

REACTIONS (1)
  - PYLORIC STENOSIS [None]
